FAERS Safety Report 17331958 (Version 2)
Quarter: 2024Q3

REPORT INFORMATION
  Report Type: Spontaneous
  Country: US (occurrence: US)
  Receive Date: 20200127
  Receipt Date: 20240802
  Transmission Date: 20241017
  Serious: No
  Sender: ARBOR
  Company Number: US-ARBOR PHARMACEUTICALS, LLC-US-2019ARB001684

PATIENT
  Age: 15 Year
  Sex: Male

DRUGS (5)
  1. TRIPTODUR [Suspect]
     Active Substance: TRIPTORELIN
     Indication: Precocious puberty
     Dosage: UNK, SINGLE
     Route: 030
     Dates: start: 20190425, end: 20190425
  2. TRIPTODUR [Suspect]
     Active Substance: TRIPTORELIN
     Dosage: UNK, SINGLE
     Route: 065
     Dates: start: 202306, end: 202306
  3. TRIPTODUR [Suspect]
     Active Substance: TRIPTORELIN
     Dosage: UNK, SINGLE
     Route: 065
     Dates: start: 202310, end: 202310
  4. TRIPTODUR [Suspect]
     Active Substance: TRIPTORELIN
  5. TRIPTODUR [Suspect]
     Active Substance: TRIPTORELIN

REACTIONS (6)
  - Increased appetite [Not Recovered/Not Resolved]
  - Eczema [Recovered/Resolved]
  - Rash [Recovered/Resolved]
  - Skin irritation [Recovered/Resolved]
  - Skin discolouration [Recovered/Resolved]
  - Off label use [Unknown]

NARRATIVE: CASE EVENT DATE: 20230601
